FAERS Safety Report 5666791-7 (Version None)
Quarter: 2008Q1

REPORT INFORMATION
  Report Type: 
  Country: None (occurrence: None)
  Receive Date: 20080315
  Receipt Date: 20071226
  Transmission Date: 20080703
  Serious: No
  Sender: FDA-Public Use
  Company Number: US-ABBOTT-08P-163-0432105-00

PATIENT
  Sex: Female

DRUGS (1)
  1. HUMIRA [Suspect]
     Indication: CROHN'S DISEASE
     Route: 058
     Dates: start: 20060728

REACTIONS (7)
  - HERPES ZOSTER [None]
  - MALAISE [None]
  - OPEN WOUND [None]
  - PAIN IN EXTREMITY [None]
  - PRURITUS [None]
  - RASH PAPULAR [None]
  - RASH VESICULAR [None]
